FAERS Safety Report 10223440 (Version 1)
Quarter: 2014Q2

REPORT INFORMATION
  Report Type: Spontaneous
  Country: US (occurrence: US)
  Receive Date: 20140609
  Receipt Date: 20140609
  Transmission Date: 20141212
  Serious: Yes (Other)
  Sender: FDA-Public Use
  Company Number: US-JNJFOC-20140518001

PATIENT
  Age: 57 Year
  Sex: Female
  Weight: 95.71 kg

DRUGS (5)
  1. SUDAFED PE PRESSURE + PAIN + COUGH + CAPLET [Suspect]
     Route: 048
  2. SUDAFED PE PRESSURE + PAIN + COUGH + CAPLET [Suspect]
     Indication: TOOTH EXTRACTION
     Dosage: 1 CAPLET
     Route: 048
     Dates: start: 20140522, end: 20140522
  3. GLIMEPIRIDE [Concomitant]
     Indication: DIABETES MELLITUS
     Route: 065
  4. METFORMIN [Concomitant]
     Indication: DIABETES MELLITUS
     Route: 065
  5. DEPAKOTE [Concomitant]
     Indication: EPILEPSY
     Route: 065

REACTIONS (3)
  - Urticaria [Not Recovered/Not Resolved]
  - Pruritus [Not Recovered/Not Resolved]
  - Skin burning sensation [Not Recovered/Not Resolved]
